FAERS Safety Report 21627176 (Version 1)
Quarter: 2022Q4

REPORT INFORMATION
  Report Type: Spontaneous
  Country: US (occurrence: None)
  Receive Date: 20221121
  Receipt Date: 20221121
  Transmission Date: 20230113
  Serious: No
  Sender: FDA-Public Use
  Company Number: None

PATIENT
  Sex: Female
  Weight: 69.99 kg

DRUGS (11)
  1. KISQALI [Suspect]
     Active Substance: RIBOCICLIB
     Indication: Breast cancer female
     Dosage: 600MG 3W, 1W OFF ORAL?
     Route: 048
  2. ARIMIDEX [Concomitant]
  3. DIAZEPAM [Concomitant]
  4. DIPHENOXYLATE-ATROPINE [Concomitant]
  5. NAPROXEN [Concomitant]
     Active Substance: NAPROXEN
  6. ONDANSETRON [Concomitant]
  7. OXAZEPAM [Concomitant]
  8. OXYCODONE [Concomitant]
  9. VITAMIN C [Concomitant]
  10. VITAMIN D3 [Concomitant]
  11. XGEVA [Concomitant]

REACTIONS (2)
  - Abscess [None]
  - Therapy interrupted [None]
